FAERS Safety Report 19375283 (Version 4)
Quarter: 2021Q3

REPORT INFORMATION
  Report Type: Report from Study
  Country: US (occurrence: US)
  Receive Date: 20210604
  Receipt Date: 20210827
  Transmission Date: 20211014
  Serious: Yes (Hospitalization)
  Sender: FDA-Public Use
  Company Number: NVSC2021US124640

PATIENT
  Sex: Male

DRUGS (2)
  1. ENTRESTO [Suspect]
     Active Substance: SACUBITRIL\VALSARTAN
     Dosage: 100 MG, BID (49/51 MG)
     Route: 048
     Dates: start: 202012
  2. ENTRESTO [Suspect]
     Active Substance: SACUBITRIL\VALSARTAN
     Indication: PRODUCT USED FOR UNKNOWN INDICATION
     Dosage: 100 MG, BID (49/51 MG)
     Route: 048
     Dates: start: 20201219

REACTIONS (11)
  - Oropharyngeal pain [Unknown]
  - Bone cancer [Unknown]
  - Weight decreased [Unknown]
  - Dyspnoea [Unknown]
  - Fatigue [Unknown]
  - Dysarthria [Recovering/Resolving]
  - Ageusia [Unknown]
  - Eating disorder [Unknown]
  - Road traffic accident [Unknown]
  - Renal cancer [Unknown]
  - Pain [Unknown]
